FAERS Safety Report 14445952 (Version 1)
Quarter: 2018Q1

REPORT INFORMATION
  Report Type: Spontaneous
  Country: US (occurrence: US)
  Receive Date: 20180126
  Receipt Date: 20180126
  Transmission Date: 20180509
  Serious: Yes (Hospitalization)
  Sender: FDA-Public Use
  Company Number: US-COLGATE PALMOLIVE COMPANY-20180100104

PATIENT

DRUGS (1)
  1. COLGATE TOTAL CLEAN MINT [Suspect]
     Active Substance: SODIUM FLUORIDE\TRICLOSAN
     Indication: DENTAL DISORDER PROPHYLAXIS
     Dosage: USED FOR TWO WEEKS AT UNKNOWN DOSE, BID
     Route: 048
     Dates: end: 20180113

REACTIONS (3)
  - Renal haemorrhage [Recovering/Resolving]
  - Product packaging quantity issue [Unknown]
  - Product packaging issue [Unknown]
